FAERS Safety Report 12883485 (Version 3)
Quarter: 2017Q1

REPORT INFORMATION
  Report Type: Report from Study
  Country: US (occurrence: US)
  Receive Date: 20161025
  Receipt Date: 20170112
  Transmission Date: 20170428
  Serious: Yes (Hospitalization)
  Sender: FDA-Public Use
  Company Number: US-ACTELION-A-US2016-144284

PATIENT
  Age: 62 Year
  Sex: Female

DRUGS (3)
  1. OPSUMIT [Suspect]
     Active Substance: MACITENTAN
     Indication: PULMONARY ARTERIAL HYPERTENSION
     Dosage: 10 MG, QD
     Route: 048
     Dates: start: 20151210
  2. ADEMPAS [Concomitant]
     Active Substance: RIOCIGUAT
  3. COUMADIN [Concomitant]
     Active Substance: WARFARIN SODIUM

REACTIONS (9)
  - Knee arthroplasty [Unknown]
  - Oxygen saturation abnormal [Unknown]
  - Dyspnoea [Recovering/Resolving]
  - Hypotension [Unknown]
  - Abdominal distension [Unknown]
  - Diarrhoea [Unknown]
  - Drug interaction [Recovering/Resolving]
  - Flatulence [Unknown]
  - Peripheral swelling [Unknown]

NARRATIVE: CASE EVENT DATE: 201610
